FAERS Safety Report 16315543 (Version 2)
Quarter: 2020Q2

REPORT INFORMATION
  Report Type: Spontaneous
  Country: US (occurrence: US)
  Receive Date: 20190515
  Receipt Date: 20200406
  Transmission Date: 20200713
  Serious: No
  Sender: FDA-Public Use
  Company Number: US-SA-2019SA125756

PATIENT
  Age: 35 Year
  Sex: Female
  Weight: 39.91 kg

DRUGS (2)
  1. TAXOTERE [Suspect]
     Active Substance: DOCETAXEL
     Dosage: 131 UNK
     Route: 042
     Dates: start: 20100407, end: 20100407
  2. TAXOTERE [Suspect]
     Active Substance: DOCETAXEL
     Indication: BREAST CANCER FEMALE
     Dosage: 131 UNK
     Route: 042
     Dates: start: 20100203, end: 20100203

REACTIONS (1)
  - Emotional distress [Unknown]
